FAERS Safety Report 19619647 (Version 2)
Quarter: 2022Q2

REPORT INFORMATION
  Report Type: Spontaneous
  Country: US (occurrence: None)
  Receive Date: 20210728
  Receipt Date: 20220621
  Transmission Date: 20220720
  Serious: No
  Sender: FDA-Public Use
  Company Number: US-ROCHE-2754361

PATIENT
  Age: 57 Year
  Sex: Female

DRUGS (3)
  1. XELODA [Suspect]
     Active Substance: CAPECITABINE
     Indication: Product used for unknown indication
     Route: 048
     Dates: start: 202101
  2. XELODA [Suspect]
     Active Substance: CAPECITABINE
     Route: 048
     Dates: start: 202104
  3. XELODA [Suspect]
     Active Substance: CAPECITABINE
     Route: 048
     Dates: start: 202012

REACTIONS (11)
  - Feeling hot [Unknown]
  - Stomatitis [Recovered/Resolved]
  - Ulcer [Unknown]
  - Ear pruritus [Unknown]
  - Nasal congestion [Unknown]
  - Fall [Unknown]
  - Fatigue [Unknown]
  - Oral pain [Recovered/Resolved]
  - Oedema peripheral [Recovered/Resolved]
  - Neuropathy peripheral [Recovered/Resolved]
  - Palmar-plantar erythrodysaesthesia syndrome [Recovered/Resolved]

NARRATIVE: CASE EVENT DATE: 20210108
